FAERS Safety Report 10414124 (Version 1)
Quarter: 2014Q3

REPORT INFORMATION
  Report Type: Spontaneous
  Country: GB (occurrence: None)
  Receive Date: 20140826
  Receipt Date: 20140826
  Transmission Date: 20150326
  Serious: Yes (Disabling, Other)
  Sender: FDA-Public Use
  Company Number: AUR-APL-2014-08910

PATIENT
  Age: 23 Year
  Sex: Male
  Weight: 85 kg

DRUGS (3)
  1. EPILIM [Suspect]
     Active Substance: VALPROATE SODIUM
     Indication: EPILEPSY
     Route: 048
  2. LAXIDO (ELECTROLYTES NOS, MACROGOL 3350) [Suspect]
     Active Substance: POLYETHYLENE GLYCOL 3350\POTASSIUM CHLORIDE\SODIUM BICARBONATE\SODIUM CHLORIDE
     Indication: CONSTIPATION
     Route: 048
     Dates: start: 20140721, end: 20140731
  3. LAMOTRIGINE 100 MG (LAMOTRIGINE) (UNKNOWN, 100 MG [Suspect]
     Active Substance: LAMOTRIGINE
     Indication: EPILEPSY
     Route: 048

REACTIONS (3)
  - Epilepsy [None]
  - Drug interaction [None]
  - Convulsion [None]

NARRATIVE: CASE EVENT DATE: 20140723
